FAERS Safety Report 7605847-6 (Version None)
Quarter: 2011Q3

REPORT INFORMATION
  Report Type: 
  Country: None (occurrence: None)
  Receive Date: 20110712
  Receipt Date: 20110712
  Transmission Date: 20111222
  Serious: No
  Sender: FDA-Public Use
  Company Number: None

PATIENT
  Sex: Male
  Weight: 63.5036 kg

DRUGS (1)
  1. CITALOPRAM HYDROBROMIDE [Suspect]
     Indication: DEPRESSION
     Dosage: 20 MG 1 TAB DAILY PO
     Route: 048
     Dates: start: 20110429, end: 20110710

REACTIONS (3)
  - RETROGRADE EJACULATION [None]
  - DRY MOUTH [None]
  - LOSS OF LIBIDO [None]
